FAERS Safety Report 12132965 (Version 2)
Quarter: 2016Q2

REPORT INFORMATION
  Report Type: Spontaneous
  Country: US (occurrence: US)
  Receive Date: 20160301
  Receipt Date: 20160411
  Transmission Date: 20160815
  Serious: Yes (Hospitalization, Other)
  Sender: FDA-Public Use
  Company Number: US-ALKERMES INC.-ALK-2016-000436

PATIENT

DRUGS (1)
  1. VIVITROL [Suspect]
     Active Substance: NALTREXONE
     Indication: DRUG DEPENDENCE
     Dosage: 380 MG, ONE TIME DOSE
     Route: 030
     Dates: start: 20150918, end: 20150918

REACTIONS (13)
  - Injection site pain [Not Recovered/Not Resolved]
  - Feeling hot [Unknown]
  - Injection site reaction [Unknown]
  - Injection site scab [Not Recovered/Not Resolved]
  - Injection site inflammation [Not Recovered/Not Resolved]
  - Injection site induration [Not Recovered/Not Resolved]
  - Injection site erythema [Unknown]
  - Injection site ulcer [Unknown]
  - Injection site irritation [Not Recovered/Not Resolved]
  - Injection site necrosis [Recovered/Resolved]
  - Injection site swelling [Not Recovered/Not Resolved]
  - Injection site warmth [Unknown]
  - Injection site pruritus [Recovered/Resolved]

NARRATIVE: CASE EVENT DATE: 201601
